FAERS Safety Report 5446864-4 (Version None)
Quarter: 2007Q3

REPORT INFORMATION
  Report Type: 
  Country: None (occurrence: None)
  Receive Date: 20070907
  Receipt Date: 20070903
  Transmission Date: 20080115
  Serious: Yes (Hospitalization)
  Sender: FDA-Public Use
  Company Number: AT-ABBOTT-07P-009-0363869-00

PATIENT
  Sex: Female
  Weight: 110 kg

DRUGS (3)
  1. REDUCTIL [Suspect]
     Indication: OBESITY
     Route: 048
     Dates: start: 20060701
  2. NOVOTHYRAL [Concomitant]
     Indication: HYPOTHYROIDISM
     Route: 048
     Dates: start: 20060601
  3. CANDESARTAN CILEXETIL [Concomitant]
     Indication: HYPERTENSION
     Dates: start: 20070301

REACTIONS (4)
  - NECROTISING GRANULOMATOUS LYMPHADENITIS [None]
  - PYREXIA [None]
  - SEPSIS [None]
  - VASCULITIS [None]
